FAERS Safety Report 10376340 (Version 1)
Quarter: 2014Q3

REPORT INFORMATION
  Report Type: Spontaneous
  Country: TW (occurrence: TW)
  Receive Date: 20140811
  Receipt Date: 20140811
  Transmission Date: 20150326
  Serious: Yes (Hospitalization)
  Sender: FDA-Public Use
  Company Number: TW-CELGENEUS-153-21880-14074791

PATIENT
  Age: 60 Year
  Sex: Male

DRUGS (1)
  1. REVLIMID [Suspect]
     Active Substance: LENALIDOMIDE
     Indication: PLASMA CELL MYELOMA
     Dosage: 25 MILLICURIES
     Route: 048

REACTIONS (5)
  - Herpes zoster [Unknown]
  - Malaise [Unknown]
  - Dyspnoea [Unknown]
  - Hypercalcaemia [Unknown]
  - Back pain [Unknown]

NARRATIVE: CASE EVENT DATE: 20140729
